FAERS Safety Report 9221438 (Version 1)
Quarter: 2013Q2

REPORT INFORMATION
  Report Type: Spontaneous
  Country: US (occurrence: US)
  Receive Date: 20130410
  Receipt Date: 20130410
  Transmission Date: 20140414
  Serious: Yes (Hospitalization)
  Sender: FDA-Public Use
  Company Number: PHHY2013US033540

PATIENT
  Sex: 0

DRUGS (5)
  1. CICLOSPORIN [Suspect]
     Indication: RENAL TRANSPLANT
     Dosage: 50 MG, BID
     Route: 048
  2. CICLOSPORIN [Suspect]
     Dosage: 25 MG, BID
     Route: 048
  3. MYCOPHENOLATE MOFETIL [Suspect]
     Indication: RENAL TRANSPLANT
     Dosage: 1000 MG, BID
     Route: 048
  4. MYCOPHENOLATE MOFETIL [Suspect]
     Dosage: 500 MG, BID
     Route: 048
  5. PREDNISONE [Suspect]
     Indication: RENAL TRANSPLANT
     Dosage: 2.5 MG, DAILY
     Route: 048

REACTIONS (12)
  - Histoplasmosis disseminated [Recovered/Resolved]
  - Renal failure acute [Unknown]
  - Renal tubular necrosis [Unknown]
  - Transplant rejection [Unknown]
  - Skin lesion [Unknown]
  - Lymphadenopathy [Recovered/Resolved]
  - Dyspnoea [Unknown]
  - Granuloma [Unknown]
  - Rash [Unknown]
  - Pyrexia [Recovered/Resolved]
  - Cough [Recovered/Resolved]
  - Night sweats [Unknown]
